FAERS Safety Report 8552521-8 (Version None)
Quarter: 2012Q3

REPORT INFORMATION
  Report Type: 
  Country: None (occurrence: None)
  Receive Date: 20120719
  Receipt Date: 20120704
  Transmission Date: 20120928
  Serious: Yes (Death, Other)
  Sender: FDA-Public Use
  Company Number: DSA_58423_2012

PATIENT
  Age: 69 Year
  Sex: Male

DRUGS (3)
  1. TAXOTERE [Suspect]
     Indication: TONGUE NEOPLASM MALIGNANT STAGE UNSPECIFIED
     Dosage: 60 MG/M2
     Dates: start: 20110101, end: 20110101
  2. FLUOROURACIL [Suspect]
     Indication: TONGUE NEOPLASM MALIGNANT STAGE UNSPECIFIED
     Dosage: 600 MG/M2
     Dates: start: 20110101, end: 20110101
  3. CISPLATIN [Suspect]
     Indication: TONGUE NEOPLASM MALIGNANT STAGE UNSPECIFIED
     Dosage: 60 MG/M2
     Dates: start: 20110101, end: 20110101

REACTIONS (2)
  - ARRHYTHMIA [None]
  - INAPPROPRIATE ANTIDIURETIC HORMONE SECRETION [None]
